FAERS Safety Report 11254540 (Version 1)
Quarter: 2015Q3

REPORT INFORMATION
  Report Type: Spontaneous
  Country: US (occurrence: None)
  Receive Date: 20150708
  Receipt Date: 20150708
  Transmission Date: 20151125
  Serious: No
  Sender: FDA-Public Use
  Company Number: None

PATIENT
  Age: 64 Year
  Sex: Male
  Weight: 77.11 kg

DRUGS (17)
  1. FEXOFENADINE [Concomitant]
     Active Substance: FEXOFENADINE\FEXOFENADINE HYDROCHLORIDE
  2. SIMVASTATIN. [Concomitant]
     Active Substance: SIMVASTATIN
  3. KLONEX [Concomitant]
  4. PROBIOTIC [Concomitant]
     Active Substance: PROBIOTICS NOS
  5. FENTANYL MYLAN [Suspect]
     Active Substance: FENTANYL
     Indication: JOINT INJURY
     Dosage: BY TRANSDERMAL PATCH
     Route: 062
     Dates: start: 20140620, end: 20150624
  6. FLUOXETINE [Concomitant]
     Active Substance: FLUOXETINE\FLUOXETINE HYDROCHLORIDE
  7. VITAMIN D [Concomitant]
     Active Substance: CHOLECALCIFEROL
  8. LISINOPRIL. [Concomitant]
     Active Substance: LISINOPRIL
  9. RANITIDINE [Concomitant]
     Active Substance: RANITIDINE\RANITIDINE HYDROCHLORIDE
  10. PROCHLORPERCINE [Concomitant]
  11. TESTOSTERONE. [Concomitant]
     Active Substance: TESTOSTERONE
  12. DONERCALCIFEROL [Concomitant]
  13. OXYCODONE [Concomitant]
     Active Substance: OXYCODONE
  14. FENTANYL. [Concomitant]
     Active Substance: FENTANYL
  15. ZETIA [Concomitant]
     Active Substance: EZETIMIBE
  16. FENTANYL MYLAN [Suspect]
     Active Substance: FENTANYL
     Indication: PAIN
     Dosage: BY TRANSDERMAL PATCH
     Route: 062
     Dates: start: 20140620, end: 20150624
  17. PROAIR HFA [Concomitant]
     Active Substance: ALBUTEROL SULFATE

REACTIONS (3)
  - Pain [None]
  - Middle insomnia [None]
  - Drug withdrawal syndrome [None]

NARRATIVE: CASE EVENT DATE: 20150622
